FAERS Safety Report 5416375-0 (Version None)
Quarter: 2007Q4

REPORT INFORMATION
  Report Type: 
  Country: None (occurrence: None)
  Receive Date: 20070718
  Receipt Date: 20060720
  Transmission Date: 20080405
  Serious: Yes (Hospitalization)
  Sender: FDA-Public Use
  Company Number: 2006048949

PATIENT
  Age: 56 Year
  Sex: Female
  Weight: 87.0906 kg

DRUGS (1)
  1. CELEBREX [Suspect]
     Indication: ARTHRITIS
     Dosage: (2 IN 1 D), ORAL
     Route: 048
     Dates: start: 20030902, end: 20050210

REACTIONS (1)
  - CEREBROVASCULAR ACCIDENT [None]
